FAERS Safety Report 14242816 (Version 2)
Quarter: 2018Q1

REPORT INFORMATION
  Report Type: Spontaneous
  Country: KR (occurrence: KR)
  Receive Date: 20171201
  Receipt Date: 20180206
  Transmission Date: 20180508
  Serious: Yes (Hospitalization, Other)
  Sender: FDA-Public Use
  Company Number: KR-BAYER-2017-226123

PATIENT
  Age: 60 Year
  Sex: Female

DRUGS (3)
  1. BAYER ASPIRIN [Suspect]
     Active Substance: ASPIRIN
  2. HEPARIN [Interacting]
     Active Substance: HEPARIN SODIUM
  3. CLOPIDOGREL [Interacting]
     Active Substance: CLOPIDOGREL BISULFATE

REACTIONS (7)
  - Haemothorax [None]
  - Motor dysfunction [None]
  - Drug administration error [None]
  - Embolic cerebral infarction [None]
  - Pericardial haemorrhage [None]
  - Labelled drug-drug interaction medication error [None]
  - Cardiomegaly [None]
